FAERS Safety Report 11538270 (Version 1)
Quarter: 2015Q3

REPORT INFORMATION
  Report Type: Spontaneous
  Country: US (occurrence: US)
  Receive Date: 20150922
  Receipt Date: 20150922
  Transmission Date: 20151125
  Serious: No
  Sender: FDA-Public Use
  Company Number: US-TEVA-594094USA

PATIENT
  Sex: Male

DRUGS (2)
  1. NUVIGIL [Suspect]
     Active Substance: ARMODAFINIL
     Route: 065
  2. XYREM [Suspect]
     Active Substance: SODIUM OXYBATE
     Route: 065

REACTIONS (1)
  - Weight decreased [Unknown]
